FAERS Safety Report 12700229 (Version 1)
Quarter: 2016Q3

REPORT INFORMATION
  Report Type: Spontaneous
  Country: CN (occurrence: CN)
  Receive Date: 20160830
  Receipt Date: 20160830
  Transmission Date: 20161109
  Serious: Yes (Hospitalization, Other)
  Sender: FDA-Public Use
  Company Number: CN-PFIZER INC-2016404549

PATIENT
  Age: 72 Year
  Sex: Female
  Weight: 56 kg

DRUGS (2)
  1. EFFEXOR XR [Suspect]
     Active Substance: VENLAFAXINE HYDROCHLORIDE
     Indication: DEPRESSION
     Dosage: 75 MG, 2X/DAY
     Route: 048
     Dates: start: 20160401, end: 20160603
  2. PAIDISHENG [Concomitant]
     Indication: DEPRESSION
     Dosage: 30 MG, 1X/DAY
     Route: 048
     Dates: start: 20160401, end: 20160606

REACTIONS (6)
  - Hypertension [Recovered/Resolved]
  - Heart rate increased [Recovered/Resolved]
  - Nervousness [Recovered/Resolved]
  - Hyperhidrosis [Recovered/Resolved]
  - Psychotic disorder [Unknown]
  - Dizziness [Recovered/Resolved]

NARRATIVE: CASE EVENT DATE: 20160531
